FAERS Safety Report 10216202 (Version 1)
Quarter: 2014Q2

REPORT INFORMATION
  Report Type: Spontaneous
  Country: US (occurrence: None)
  Receive Date: 20140603
  Receipt Date: 20140603
  Transmission Date: 20141212
  Serious: Yes (Hospitalization)
  Sender: FDA-Public Use
  Company Number: None

PATIENT
  Age: 69 Year
  Sex: Male
  Weight: 80.29 kg

DRUGS (1)
  1. BENICAR [Suspect]
     Indication: HYPERTENSION
     Dosage: 1 TABLET DAILY, ONCE DAILY, TAKEN BY MOUTH
     Route: 048
     Dates: start: 20130726, end: 20140525

REACTIONS (12)
  - Diarrhoea [None]
  - Fatigue [None]
  - Weight decreased [None]
  - Vomiting [None]
  - Hypotension [None]
  - Dehydration [None]
  - Colitis microscopic [None]
  - Vertigo [None]
  - Blood pressure systolic increased [None]
  - Nausea [None]
  - Blood glucose increased [None]
  - Malabsorption [None]
